FAERS Safety Report 6925252-5 (Version None)
Quarter: 2010Q3

REPORT INFORMATION
  Report Type: 
  Country: None (occurrence: None)
  Receive Date: 20100811
  Receipt Date: 20100727
  Transmission Date: 20110219
  Serious: Yes (Hospitalization)
  Sender: FDA-Public Use
  Company Number: AE 2010-191

PATIENT
  Age: 57 Year
  Sex: Male

DRUGS (3)
  1. FAZACLO ODT [Suspect]
     Indication: DEPRESSION
     Dosage: 200 MG DAILY PO
     Route: 048
     Dates: start: 20100620
  2. FAZACLO ODT [Suspect]
     Indication: SCHIZOPHRENIA
     Dosage: 200 MG DAILY PO
     Route: 048
     Dates: start: 20100620
  3. GEODON [Concomitant]

REACTIONS (3)
  - CORONARY ARTERY OCCLUSION [None]
  - ELECTROCARDIOGRAM ABNORMAL [None]
  - TROPONIN INCREASED [None]
